FAERS Safety Report 14004112 (Version 1)
Quarter: 2017Q3

REPORT INFORMATION
  Report Type: Spontaneous
  Country: US (occurrence: US)
  Receive Date: 20170922
  Receipt Date: 20170922
  Transmission Date: 20171128
  Serious: No
  Sender: FDA-Public Use
  Company Number: US-JNJFOC-20170801306

PATIENT
  Sex: Female

DRUGS (1)
  1. LEVAQUIN [Suspect]
     Active Substance: LEVOFLOXACIN
     Indication: STEVENS-JOHNSON SYNDROME
     Route: 065

REACTIONS (4)
  - Product used for unknown indication [Unknown]
  - Off label use [Unknown]
  - Fall [Unknown]
  - Dyspnoea [Unknown]
